FAERS Safety Report 7773099-2 (Version None)
Quarter: 2011Q3

REPORT INFORMATION
  Report Type: 
  Country: None (occurrence: None)
  Receive Date: 20110922
  Receipt Date: 20110328
  Transmission Date: 20111222
  Serious: No
  Sender: FDA-Public Use
  Company Number: US-ASTRAZENECA-2011SE17508

PATIENT
  Age: 15753 Day
  Sex: Female

DRUGS (10)
  1. HYDROXY PAM [Concomitant]
  2. FERROUS SUL [Concomitant]
     Dates: start: 20050114
  3. SEROQUEL [Suspect]
     Route: 048
     Dates: start: 20060818
  4. SEROQUEL [Suspect]
     Route: 048
     Dates: start: 20050103
  5. GEODON [Concomitant]
  6. LEXAPRO [Concomitant]
     Dates: start: 20060821
  7. BENZTROPINE MESYLATE [Concomitant]
     Dates: start: 20050103
  8. LEXAPRO [Concomitant]
     Dates: start: 20050207
  9. RANITIDINE [Concomitant]
  10. TRAZODONE HYDROCHLORIDE [Concomitant]
     Dates: start: 20050228

REACTIONS (2)
  - URINARY TRACT INFECTION [None]
  - DIABETES MELLITUS [None]
